FAERS Safety Report 14818784 (Version 4)
Quarter: 2022Q1

REPORT INFORMATION
  Report Type: Spontaneous
  Country: US (occurrence: None)
  Receive Date: 20180427
  Receipt Date: 20220323
  Transmission Date: 20220423
  Serious: Yes (Hospitalization, Other)
  Sender: FDA-Public Use
  Company Number: 2018SE51016

PATIENT
  Age: 17815 Day
  Sex: Male
  Weight: 105.2 kg

DRUGS (57)
  1. NEXIUM [Suspect]
     Active Substance: ESOMEPRAZOLE MAGNESIUM
     Route: 048
     Dates: start: 2004, end: 201709
  2. NEXIUM 24HR [Suspect]
     Active Substance: ESOMEPRAZOLE MAGNESIUM
     Route: 048
     Dates: start: 2004, end: 201709
  3. PRILOSEC [Suspect]
     Active Substance: OMEPRAZOLE MAGNESIUM
     Indication: Gastrooesophageal reflux disease
     Route: 048
     Dates: start: 2004, end: 201709
  4. PRILOSEC [Suspect]
     Active Substance: OMEPRAZOLE MAGNESIUM
     Indication: Gastrooesophageal reflux disease
     Route: 048
     Dates: start: 2004, end: 201709
  5. PRILOSEC [Suspect]
     Active Substance: OMEPRAZOLE MAGNESIUM
     Indication: Gastrooesophageal reflux disease
     Dosage: GENERIC
     Route: 065
     Dates: start: 2004
  6. PRILOSEC [Suspect]
     Active Substance: OMEPRAZOLE MAGNESIUM
     Indication: Gastrooesophageal reflux disease
     Dosage: GENERIC
     Route: 065
     Dates: start: 2004
  7. PRILOSEC [Suspect]
     Active Substance: OMEPRAZOLE MAGNESIUM
     Indication: Gastrooesophageal reflux disease
     Dosage: GENERIC
     Route: 065
     Dates: start: 20181006
  8. PRILOSEC [Suspect]
     Active Substance: OMEPRAZOLE MAGNESIUM
     Indication: Gastrooesophageal reflux disease
     Dosage: GENERIC
     Route: 065
     Dates: start: 20181006
  9. PRILOSEC OTC [Suspect]
     Active Substance: OMEPRAZOLE MAGNESIUM
     Indication: Gastrooesophageal reflux disease
     Route: 048
     Dates: start: 2004, end: 201709
  10. PRILOSEC OTC [Suspect]
     Active Substance: OMEPRAZOLE MAGNESIUM
     Indication: Gastrooesophageal reflux disease
     Route: 048
     Dates: start: 20040101, end: 20170914
  11. PRILOSEC OTC [Suspect]
     Active Substance: OMEPRAZOLE MAGNESIUM
     Indication: Gastrooesophageal reflux disease
     Route: 048
     Dates: start: 2004
  12. ZEGERID OTC [Suspect]
     Active Substance: OMEPRAZOLE\SODIUM BICARBONATE
     Indication: Gastrooesophageal reflux disease
     Route: 065
     Dates: start: 20100413
  13. DEXILANT [Suspect]
     Active Substance: DEXLANSOPRAZOLE
     Route: 065
     Dates: start: 2004, end: 201709
  14. PREVACID [Suspect]
     Active Substance: LANSOPRAZOLE
     Route: 065
     Dates: start: 2004, end: 201709
  15. PREVACID 24 HR [Suspect]
     Active Substance: LANSOPRAZOLE
     Route: 065
     Dates: start: 2004, end: 201709
  16. PROTONIX [Suspect]
     Active Substance: PANTOPRAZOLE SODIUM
     Route: 065
     Dates: start: 2004, end: 201709
  17. LISINOPRIL [Concomitant]
     Active Substance: LISINOPRIL
     Indication: Hypertension
     Dates: start: 20090205, end: 20171117
  18. METFORMIN [Concomitant]
     Active Substance: METFORMIN HYDROCHLORIDE
     Indication: Blood glucose increased
     Dates: start: 20091130, end: 20161110
  19. SIMVASTATIN [Concomitant]
     Active Substance: SIMVASTATIN
     Indication: Blood cholesterol increased
     Dates: start: 20090403, end: 20170711
  20. ZOLPIDEM [Concomitant]
     Active Substance: ZOLPIDEM TARTRATE
     Indication: Insomnia
     Dates: start: 20091208, end: 20181030
  21. ATENOLOL [Concomitant]
     Active Substance: ATENOLOL
     Indication: Hypertension
     Dates: start: 20090922, end: 20171117
  22. NAPROXEN [Concomitant]
     Active Substance: NAPROXEN
     Indication: Analgesic therapy
     Dates: start: 20140425, end: 20170117
  23. FOLIC ACID [Concomitant]
     Active Substance: FOLIC ACID
     Indication: Anaemia
     Dates: start: 20131002, end: 20150628
  24. INDOMETHACIN [Concomitant]
     Active Substance: INDOMETHACIN
     Indication: Arthritis
     Dates: start: 20120127, end: 20140429
  25. ALLOPURINOL [Concomitant]
     Active Substance: ALLOPURINOL
     Indication: Gout
     Dates: start: 20120127, end: 20130301
  26. COLCHICINE [Concomitant]
     Active Substance: COLCHICINE
     Route: 065
     Dates: start: 20180912, end: 20190913
  27. ROSUVASTATIN [Concomitant]
     Active Substance: ROSUVASTATIN
     Route: 065
     Dates: start: 20180621, end: 20190622
  28. INSULIN NOS [Concomitant]
     Active Substance: INSULIN NOS
     Route: 065
     Dates: start: 20180618, end: 20190619
  29. DILTIAZEM [Concomitant]
     Active Substance: DILTIAZEM
     Indication: Hypertension
     Dates: start: 20090529, end: 20141014
  30. ATORVASTATIN [Concomitant]
     Active Substance: ATORVASTATIN
     Indication: Blood cholesterol increased
     Dates: start: 20150628
  31. FUROSEMIDE [Concomitant]
     Active Substance: FUROSEMIDE
     Indication: Oedema
  32. AZITHROMYCIN [Concomitant]
     Active Substance: AZITHROMYCIN
     Indication: Infection
     Dates: start: 20110603, end: 20160106
  33. THIAMINE [Concomitant]
     Active Substance: THIAMINE
     Indication: Vitamin B1 deficiency
     Dates: start: 20131002, end: 20161110
  34. HYDROCHLOROTHIAZIDE [Concomitant]
     Active Substance: HYDROCHLOROTHIAZIDE
     Indication: Oedema
     Dates: start: 20090205, end: 20110526
  35. GLYBURIDE [Concomitant]
     Active Substance: GLYBURIDE
     Indication: Blood glucose abnormal
     Dates: start: 20090122, end: 20141014
  36. ASPIRIN [Concomitant]
     Active Substance: ASPIRIN
     Indication: Analgesic therapy
  37. TUMS [Concomitant]
     Active Substance: CALCIUM CARBONATE
     Dates: start: 2013, end: 2015
  38. ALKA-SELTZER [Concomitant]
     Active Substance: ANHYDROUS CITRIC ACID\ASPIRIN\SODIUM BICARBONATE
     Dates: start: 2013, end: 2015
  39. PEPTO-BISMOL [Concomitant]
     Active Substance: BISMUTH SUBSALICYLATE
     Dates: start: 2013, end: 2015
  40. ROLAIDS [Concomitant]
     Active Substance: CALCIUM CARBONATE\MAGNESIUM HYDROXIDE
     Dates: start: 2013, end: 2015
  41. HEPARIN [Concomitant]
     Active Substance: HEPARIN SODIUM
     Dates: start: 2013, end: 2015
  42. LANCET [Concomitant]
     Dates: start: 2013, end: 2015
  43. SILDENAFIL [Concomitant]
     Active Substance: SILDENAFIL
     Dates: start: 2013, end: 2015
  44. AMOXICILLIN [Concomitant]
     Active Substance: AMOXICILLIN
     Dates: start: 2013, end: 2015
  45. CEPHALEXIN [Concomitant]
     Active Substance: CEPHALEXIN
     Dates: start: 2013, end: 2015
  46. FLUTICASONE [Concomitant]
     Active Substance: FLUTICASONE
     Dates: start: 2013, end: 2015
  47. TERBINAFINE [Concomitant]
     Active Substance: TERBINAFINE
     Dates: start: 2013, end: 2015
  48. METHOCARBAMOL [Concomitant]
     Active Substance: METHOCARBAMOL
     Dates: start: 2013, end: 2015
  49. PREDNISONE [Concomitant]
     Active Substance: PREDNISONE
     Dates: start: 2013, end: 2015
  50. POTASSIUM CHLORIDE [Concomitant]
     Active Substance: POTASSIUM CHLORIDE
     Dates: start: 2013, end: 2015
  51. CYCLOBENZAPRINE [Concomitant]
     Active Substance: CYCLOBENZAPRINE
     Dates: start: 2013, end: 2015
  52. ONDANSETRON [Concomitant]
     Active Substance: ONDANSETRON
     Dates: start: 2013, end: 2015
  53. CALCIUM GLUCONATE [Concomitant]
     Active Substance: CALCIUM GLUCONATE
     Dates: start: 2013, end: 2015
  54. MOXIFLOXACIN [Concomitant]
     Active Substance: MOXIFLOXACIN
     Dates: start: 2013, end: 2015
  55. GUAIFENESIN [Concomitant]
     Active Substance: GUAIFENESIN
     Dates: start: 2013, end: 2015
  56. LORATADINE [Concomitant]
     Active Substance: LORATADINE
     Dates: start: 2013, end: 2015
  57. TRIAMCINOLONE [Concomitant]
     Active Substance: TRIAMCINOLONE
     Dates: start: 2013, end: 2015

REACTIONS (4)
  - Chronic kidney disease [Unknown]
  - Renal injury [Unknown]
  - Acute kidney injury [Not Recovered/Not Resolved]
  - Renal failure [Unknown]

NARRATIVE: CASE EVENT DATE: 20131004
